FAERS Safety Report 8624396-X (Version None)
Quarter: 2012Q3

REPORT INFORMATION
  Report Type: 
  Country: None (occurrence: None)
  Receive Date: 20120827
  Receipt Date: 20120820
  Transmission Date: 20120928
  Serious: Yes (Hospitalization)
  Sender: FDA-Public Use
  Company Number: TW-ROXANE LABORATORIES, INC.-2012-RO-01732RO

PATIENT
  Age: 60 Year
  Sex: Female

DRUGS (5)
  1. LITHIUM CARBONATE [Suspect]
     Indication: BIPOLAR I DISORDER
  2. LITHIUM CARBONATE [Suspect]
     Dosage: 300 MG
  3. QUETIAPINE FUMARATE [Suspect]
     Dosage: 200 MG
  4. VALPROATE SODIUM [Suspect]
     Dosage: 500 MG
  5. QUETIAPINE FUMARATE [Suspect]
     Dosage: 400 MG

REACTIONS (2)
  - NEUTROPENIA [None]
  - MANIA [None]
